FAERS Safety Report 12982540 (Version 1)
Quarter: 2016Q4

REPORT INFORMATION
  Report Type: Spontaneous
  Country: DE (occurrence: DE)
  Receive Date: 20161129
  Receipt Date: 20161129
  Transmission Date: 20170207
  Serious: Yes (Other)
  Sender: FDA-Public Use
  Company Number: DE-PFIZER INC-2016544007

PATIENT
  Age: 80 Year
  Sex: Female

DRUGS (15)
  1. LORAZEPAM. [Suspect]
     Active Substance: LORAZEPAM
     Dosage: 2 MG, DAILY
     Route: 048
     Dates: start: 20160131, end: 20160208
  2. RISPERDAL [Suspect]
     Active Substance: RISPERIDONE
     Dosage: 1 MG, DAILY
     Route: 048
     Dates: start: 20160208, end: 20160222
  3. RISPERDAL [Suspect]
     Active Substance: RISPERIDONE
     Dosage: 1 MG, DAILY
     Route: 048
     Dates: start: 20160301, end: 20160321
  4. RISPERDAL [Suspect]
     Active Substance: RISPERIDONE
     Dosage: 1.5 MG, DAILY
     Route: 048
     Dates: start: 20160223, end: 20160229
  5. RISPERDAL [Suspect]
     Active Substance: RISPERIDONE
     Dosage: 1.5 MG, DAILY
     Route: 048
     Dates: start: 20160322, end: 20160408
  6. METFORMIN [Concomitant]
     Active Substance: METFORMIN HYDROCHLORIDE
     Dosage: 1000 MG, DAILY
     Route: 048
  7. LORAZEPAM. [Suspect]
     Active Substance: LORAZEPAM
     Dosage: 1 MG, DAILY
     Route: 048
     Dates: start: 20160209, end: 20160220
  8. HCT [Concomitant]
     Active Substance: HYDROCHLOROTHIAZIDE
     Dosage: 12.5 MG, DAILY
     Route: 048
  9. VALSARTAN. [Concomitant]
     Active Substance: VALSARTAN
     Dosage: 80 MG, DAILY
     Route: 048
  10. LORAZEPAM. [Suspect]
     Active Substance: LORAZEPAM
     Dosage: 0.5 MG, DAILY
     Route: 048
     Dates: start: 20160301, end: 20160318
  11. SERTRALINE [Concomitant]
     Active Substance: SERTRALINE HYDROCHLORIDE
     Dosage: 50 MG, DAILY
     Route: 048
     Dates: start: 20160210, end: 20160408
  12. LORAZEPAM. [Suspect]
     Active Substance: LORAZEPAM
     Dosage: 0.75 MG, DAILY
     Route: 048
     Dates: start: 20160221, end: 20160229
  13. TORASEMID [Concomitant]
     Active Substance: TORSEMIDE
     Dosage: 10 MG, DAILY
     Route: 048
  14. ADENURIC [Concomitant]
     Active Substance: FEBUXOSTAT
     Dosage: 80 MG, DAILY
     Dates: start: 20160305
  15. L-THYROXIN [Concomitant]
     Active Substance: LEVOTHYROXINE SODIUM
     Dosage: 50 UG, DAILY
     Route: 048

REACTIONS (1)
  - Pneumonia [Recovered/Resolved]

NARRATIVE: CASE EVENT DATE: 20160308
